FAERS Safety Report 5241372-8 (Version None)
Quarter: 2007Q1

REPORT INFORMATION
  Report Type: 
  Country: None (occurrence: None)
  Receive Date: 20070220
  Receipt Date: 20070126
  Transmission Date: 20070707
  Serious: Yes (Other)
  Sender: FDA-Public Use
  Company Number: FI-RB-005279-07

PATIENT
  Age: 29 Year
  Sex: Male

DRUGS (3)
  1. SUBOXONE [Suspect]
     Route: 065
     Dates: start: 20050210
  2. DORMICUM [Concomitant]
     Indication: DRUG USE FOR UNKNOWN INDICATION
     Dosage: DOSAGE UNKNOWN
     Route: 065
  3. DIAPAM [Concomitant]
     Indication: DRUG USE FOR UNKNOWN INDICATION
     Dosage: DOSAGE UNKNOWN
     Route: 065

REACTIONS (3)
  - SECRETION DISCHARGE [None]
  - TOOTH LOSS [None]
  - TOOTHACHE [None]
